FAERS Safety Report 13871998 (Version 2)
Quarter: 2017Q3

REPORT INFORMATION
  Report Type: Spontaneous
  Country: US (occurrence: US)
  Receive Date: 20170816
  Receipt Date: 20170901
  Transmission Date: 20171127
  Serious: Yes (Other)
  Sender: FDA-Public Use
  Company Number: US-SAOL THERAPEUTICS-2017SAO01312

PATIENT
  Age: 48 Year
  Sex: Female

DRUGS (2)
  1. BACLOFEN. [Suspect]
     Active Substance: BACLOFEN
     Indication: MUSCLE SPASTICITY
     Dosage: 325.5 ?G, \DAY
     Route: 037
  2. BACLOFEN. [Suspect]
     Active Substance: BACLOFEN
     Indication: MULTIPLE SCLEROSIS

REACTIONS (3)
  - Device dislocation [Recovered/Resolved]
  - Implant site scar [Not Recovered/Not Resolved]
  - Implant site pain [Not Recovered/Not Resolved]

NARRATIVE: CASE EVENT DATE: 200007
